FAERS Safety Report 4405020-9 (Version None)
Quarter: 2004Q3

REPORT INFORMATION
  Report Type: 
  Country: None (occurrence: None)
  Receive Date: 20040716
  Receipt Date: 20040706
  Transmission Date: 20050211
  Serious: Yes (Death, Hospitalization)
  Sender: FDA-Public Use
  Company Number: US-JNJFOC-20040602984

PATIENT
  Age: 36 Year
  Sex: Female

DRUGS (2)
  1. DURAGESIC [Suspect]
     Dosage: 200 UG/HR, 1 IN 72 HOUR, TRANSDERMAL
     Route: 062
     Dates: end: 20040103
  2. DILAUDID [Concomitant]

REACTIONS (45)
  - ABDOMINAL DISTENSION [None]
  - ABNORMAL FAECES [None]
  - ACUTE RESPIRATORY DISTRESS SYNDROME [None]
  - ALPHA HAEMOLYTIC STREPTOCOCCAL INFECTION [None]
  - ASPIRATION [None]
  - ASTHENIA [None]
  - BLOOD ALBUMIN DECREASED [None]
  - BLOOD CULTURE POSITIVE [None]
  - BOWEL SOUNDS ABNORMAL [None]
  - BREATH SOUNDS DECREASED [None]
  - CACHEXIA [None]
  - CATHETER SITE HAEMORRHAGE [None]
  - DEEP VEIN THROMBOSIS [None]
  - DRUG TOXICITY [None]
  - DRY THROAT [None]
  - EFFUSION [None]
  - ESCHERICHIA INFECTION [None]
  - FLUID OVERLOAD [None]
  - GENERAL NUTRITION DISORDER [None]
  - GRAVITATIONAL OEDEMA [None]
  - HYPOREFLEXIA [None]
  - HYPOTENSION [None]
  - LACTIC ACIDOSIS [None]
  - LEUKOCYTOSIS [None]
  - LUNG INFILTRATION [None]
  - LYMPHADENOPATHY [None]
  - LYMPHATIC OBSTRUCTION [None]
  - METABOLIC ACIDOSIS [None]
  - METASTASES TO PERITONEUM [None]
  - NEUTROPENIA [None]
  - OVARIAN CANCER [None]
  - PLATELET COUNT INCREASED [None]
  - POVERTY OF SPEECH [None]
  - PROTEUS INFECTION [None]
  - RASH SCALY [None]
  - REFUSAL OF TREATMENT BY PATIENT [None]
  - RESPIRATORY FAILURE [None]
  - SEPSIS [None]
  - SKIN INDURATION [None]
  - SOCIAL AVOIDANT BEHAVIOUR [None]
  - TACHYCARDIA [None]
  - TACHYPNOEA [None]
  - UPPER GASTROINTESTINAL HAEMORRHAGE [None]
  - URINE OUTPUT DECREASED [None]
  - VOMITING [None]
